FAERS Safety Report 6856798-6 (Version None)
Quarter: 2010Q3

REPORT INFORMATION
  Report Type: 
  Country: None (occurrence: None)
  Receive Date: 20100719
  Receipt Date: 20100714
  Transmission Date: 20110219
  Serious: Yes (Death, Hospitalization)
  Sender: FDA-Public Use
  Company Number: BE-BRISTOL-MYERS SQUIBB COMPANY-15094436

PATIENT
  Age: 39 Year
  Sex: Male
  Weight: 63 kg

DRUGS (16)
  1. CETUXIMAB [Suspect]
     Indication: HEAD AND NECK CANCER
     Dosage: DAY 1 CYCLE 1. ALSO 250MG/M2 WEEKLY IV.LAST DOSE RECEIVED ON 28-APR-2010
     Route: 042
     Dates: start: 20100317, end: 20100428
  2. CISPLATIN [Suspect]
     Indication: HEAD AND NECK CANCER
     Dosage: DAY 1 EVERY 21 DAYS.LAST DOSE RECEIVED ON 28-APR-2010
     Route: 042
     Dates: start: 20100317, end: 20100428
  3. PEMETREXED DISODIUM [Suspect]
     Indication: HEAD AND NECK CANCER
     Dosage: DAY 1 EVERY 21 DAYS.LAST DOSE RECEIVED ON 28-APR-2010
     Route: 042
     Dates: start: 20100317, end: 20100428
  4. DEXAMETHASONE ACETATE [Concomitant]
     Dates: start: 20100316, end: 20100319
  5. PANTOZOL [Concomitant]
     Dates: start: 20050309
  6. REDOMEX [Concomitant]
  7. DAFALGAN [Concomitant]
  8. FLAGYL [Concomitant]
     Dates: start: 20090709
  9. LORAZEPAM [Concomitant]
     Dates: start: 20100310, end: 20100311
  10. SOLU-MEDROL [Concomitant]
     Dates: start: 20100407, end: 20100407
  11. EMEND [Concomitant]
     Dates: start: 20100428, end: 20100430
  12. ZOFRAN [Concomitant]
     Dates: start: 20100428, end: 20100429
  13. TEMGESIC [Concomitant]
     Dates: start: 20100324
  14. AUGMENTIN '125' [Concomitant]
     Dates: start: 20100430
  15. SODIUM CHLORIDE [Concomitant]
     Dates: start: 20100428
  16. MULTI-VITAMIN [Concomitant]

REACTIONS (2)
  - DEATH [None]
  - DYSPNOEA [None]
